FAERS Safety Report 4575598-3 (Version None)
Quarter: 2005Q1

REPORT INFORMATION
  Report Type: 
  Country: None (occurrence: None)
  Receive Date: 20050128
  Receipt Date: 20050128
  Transmission Date: 20050727
  Serious: Yes (Hospitalization, Other)
  Sender: FDA-Public Use
  Company Number: None

PATIENT
  Sex: Male
  Weight: 90.7194 kg

DRUGS (10)
  1. NEURONTIN [Suspect]
     Indication: ANIMAL BITE
     Dosage: SEE IMAGE
     Dates: start: 20020401, end: 20041001
  2. NEXIUM [Concomitant]
  3. PROTONIX [Concomitant]
  4. PREVACID [Concomitant]
  5. ACIPHEX [Concomitant]
  6. ULTRAM [Concomitant]
  7. MOBIC [Concomitant]
  8. CELEBREX [Concomitant]
  9. HERBAL PRODUCTS [Concomitant]
  10. OMEGA 3 PRODUCTS [Concomitant]

REACTIONS (12)
  - ABDOMINAL DISCOMFORT [None]
  - BOWEL SOUNDS ABNORMAL [None]
  - CONVULSION [None]
  - FAECES DISCOLOURED [None]
  - HAEMATEMESIS [None]
  - HAIR COLOUR CHANGES [None]
  - MEDICATION ERROR [None]
  - MELAENA [None]
  - MUSCLE TWITCHING [None]
  - REFUSAL OF TREATMENT BY PATIENT [None]
  - STOOL ANALYSIS ABNORMAL [None]
  - VOMITING [None]
